FAERS Safety Report 19136794 (Version 2)
Quarter: 2021Q2

REPORT INFORMATION
  Report Type: Spontaneous
  Country: US (occurrence: US)
  Receive Date: 20210414
  Receipt Date: 20210525
  Transmission Date: 20210717
  Serious: Yes (Hospitalization)
  Sender: FDA-Public Use
  Company Number: US-ELI_LILLY_AND_COMPANY-US202104005484

PATIENT
  Sex: Female
  Weight: 108.84 kg

DRUGS (10)
  1. SUMATRIPTAN. [Concomitant]
     Active Substance: SUMATRIPTAN
  2. EFFEXOR [Concomitant]
     Active Substance: VENLAFAXINE HYDROCHLORIDE
  3. MG [MAGNESIUM] [Concomitant]
     Active Substance: MAGNESIUM
  4. VITAMIN B2 [Concomitant]
     Active Substance: RIBOFLAVIN
  5. ZOFRAN [Concomitant]
     Active Substance: ONDANSETRON HYDROCHLORIDE
  6. COENZYME Q10 [Concomitant]
     Active Substance: DIETARY SUPPLEMENT\UBIDECARENONE
  7. EMGALITY [Concomitant]
     Active Substance: GALCANEZUMAB-GNLM
  8. REYVOW [Suspect]
     Active Substance: LASMIDITAN
     Indication: STATUS MIGRAINOSUS
     Dosage: 100 MG, PRN
     Route: 048
     Dates: start: 20201001
  9. REYVOW [Suspect]
     Active Substance: LASMIDITAN
     Dosage: 200 MG, PRN
     Route: 048
     Dates: end: 20201031
  10. NURTEC ODT [Concomitant]
     Active Substance: RIMEGEPANT SULFATE

REACTIONS (1)
  - Suicidal ideation [Recovered/Resolved]
